FAERS Safety Report 4784739-4 (Version None)
Quarter: 2005Q3

REPORT INFORMATION
  Report Type: 
  Country: None (occurrence: None)
  Receive Date: 20050930
  Receipt Date: 20050921
  Transmission Date: 20060218
  Serious: Yes (Life-Threatening)
  Sender: FDA-Public Use
  Company Number: IT-ROCHE-418516

PATIENT
  Age: 52 Year
  Sex: Female

DRUGS (1)
  1. LARIAM [Suspect]
     Indication: DRUG USE FOR UNKNOWN INDICATION
     Route: 048
     Dates: start: 20050213, end: 20050313

REACTIONS (4)
  - ANXIETY [None]
  - CRYING [None]
  - DYSPNOEA [None]
  - PANIC ATTACK [None]
